FAERS Safety Report 11914517 (Version 1)
Quarter: 2016Q1

REPORT INFORMATION
  Report Type: Spontaneous
  Country: US (occurrence: US)
  Receive Date: 20160113
  Receipt Date: 20160113
  Transmission Date: 20160526
  Serious: No
  Sender: FDA-Public Use
  Company Number: US-BAYER-2016-006924

PATIENT
  Age: 78 Year
  Sex: Male
  Weight: 70.3 kg

DRUGS (2)
  1. CLARITIN REDITABS [Suspect]
     Active Substance: LORATADINE
     Dosage: UNK
  2. CLARITIN [Suspect]
     Active Substance: LORATADINE
     Indication: RHINORRHOEA
     Dosage: 1 DF, QD

REACTIONS (4)
  - Therapeutic response unexpected [Unknown]
  - Intentional product use issue [None]
  - Drug ineffective [Unknown]
  - Therapeutic response unexpected [None]
